FAERS Safety Report 4983779-X (Version None)
Quarter: 2006Q1

REPORT INFORMATION
  Report Type: 
  Country: None (occurrence: None)
  Receive Date: 20060302
  Receipt Date: 20060116
  Transmission Date: 20060701
  Serious: No
  Sender: FDA-Public Use
  Company Number: PHEH2006US00963

PATIENT
  Age: 66 Year
  Sex: Female

DRUGS (1)
  1. EXJADE [Suspect]
     Dosage: 3 TABS 500MG + 1 TAB 250 MG QD

REACTIONS (3)
  - MALAISE [None]
  - NAUSEA [None]
  - URTICARIA [None]
